FAERS Safety Report 16356450 (Version 1)
Quarter: 2019Q2

REPORT INFORMATION
  Report Type: Spontaneous
  Country: US (occurrence: US)
  Receive Date: 20190527
  Receipt Date: 20190527
  Transmission Date: 20190711
  Serious: No
  Sender: FDA-Public Use
  Company Number: US-ASTRAZENECA-2019SE69210

PATIENT
  Age: 823 Month
  Sex: Male
  Weight: 145.6 kg

DRUGS (2)
  1. BYDUREON [Suspect]
     Active Substance: EXENATIDE
     Indication: TYPE 2 DIABETES MELLITUS
     Dosage: BYDUREON SDT, 2 MG ONCE A WEEK
     Route: 058
  2. BYDUREON [Suspect]
     Active Substance: EXENATIDE
     Indication: TYPE 2 DIABETES MELLITUS
     Dosage: BYDUREON PEN, 2 MG ONCE A WEEK
     Route: 058
     Dates: start: 201811

REACTIONS (3)
  - Wrong technique in device usage process [Recovered/Resolved]
  - Injection site pain [Recovered/Resolved]
  - Device malfunction [Unknown]

NARRATIVE: CASE EVENT DATE: 201811
